FAERS Safety Report 9264740 (Version 1)
Quarter: 2013Q2

REPORT INFORMATION
  Report Type: Spontaneous
  Country: US (occurrence: None)
  Receive Date: 20130429
  Receipt Date: 20130429
  Transmission Date: 20140414
  Serious: Yes (Hospitalization)
  Sender: FDA-Public Use
  Company Number: None

PATIENT
  Age: 60 Year
  Sex: Female

DRUGS (1)
  1. ZELBORAF [Suspect]
     Dosage: 240 MG, 4 TABS, BID, PO
     Route: 048
     Dates: start: 20130401, end: 20130408

REACTIONS (2)
  - Diarrhoea [None]
  - Vomiting [None]
